FAERS Safety Report 22112335 (Version 1)
Quarter: 2023Q1

REPORT INFORMATION
  Report Type: Spontaneous
  Country: FR (occurrence: FR)
  Receive Date: 20230319
  Receipt Date: 20230319
  Transmission Date: 20230418
  Serious: Yes (Death, Other)
  Sender: FDA-Public Use
  Company Number: FR-AFSSAPS-AVBX2023000107

PATIENT
  Age: 26 Year
  Sex: Male

DRUGS (4)
  1. DOXYLAMINE [Suspect]
     Active Substance: DOXYLAMINE
     Indication: Product used for unknown indication
     Dosage: UNK
     Route: 065
     Dates: start: 2022
  2. CITALOPRAM [Suspect]
     Active Substance: CITALOPRAM HYDROBROMIDE
     Indication: Product used for unknown indication
     Dosage: UNK
     Route: 065
     Dates: start: 2022
  3. BUPRENORPHINE [Suspect]
     Active Substance: BUPRENORPHINE
     Indication: Product used for unknown indication
     Dosage: UNK
     Route: 065
     Dates: start: 2022
  4. MIDOMAFETAMINE [Suspect]
     Active Substance: MIDOMAFETAMINE
     Indication: Product used for unknown indication
     Dosage: UNK
     Route: 065
     Dates: start: 2022

REACTIONS (1)
  - Death [Fatal]

NARRATIVE: CASE EVENT DATE: 20220101
